FAERS Safety Report 6292721-3 (Version None)
Quarter: 2009Q3

REPORT INFORMATION
  Report Type: 
  Country: None (occurrence: None)
  Receive Date: 20090731
  Receipt Date: 20090723
  Transmission Date: 20100115
  Serious: Yes (Death)
  Sender: FDA-Public Use
  Company Number: A0799282A

PATIENT
  Sex: Female

DRUGS (2)
  1. SERETIDE [Suspect]
     Indication: DRUG USE FOR UNKNOWN INDICATION
     Route: 055
  2. OXYGEN [Concomitant]

REACTIONS (3)
  - CEREBRAL HAEMORRHAGE [None]
  - HYPERTENSION [None]
  - RENAL FAILURE [None]
